FAERS Safety Report 20178026 (Version 2)
Quarter: 2022Q1

REPORT INFORMATION
  Report Type: Spontaneous
  Country: CN (occurrence: CN)
  Receive Date: 20211213
  Receipt Date: 20220105
  Transmission Date: 20220423
  Serious: Yes (Other)
  Sender: FDA-Public Use
  Company Number: CN-SA-2021SA411713

PATIENT
  Age: 50 Year
  Sex: Female

DRUGS (22)
  1. GEMCITABINE HYDROCHLORIDE [Suspect]
     Active Substance: GEMCITABINE HYDROCHLORIDE
     Indication: HER2 positive breast cancer
     Dosage: UNK
     Dates: start: 20200116
  2. GEMCITABINE HYDROCHLORIDE [Suspect]
     Active Substance: GEMCITABINE HYDROCHLORIDE
     Indication: Metastases to lung
  3. GEMCITABINE HYDROCHLORIDE [Suspect]
     Active Substance: GEMCITABINE HYDROCHLORIDE
     Indication: Metastases to bone
  4. GEMCITABINE HYDROCHLORIDE [Suspect]
     Active Substance: GEMCITABINE HYDROCHLORIDE
     Indication: Metastases to central nervous system
  5. GEMCITABINE HYDROCHLORIDE [Suspect]
     Active Substance: GEMCITABINE HYDROCHLORIDE
     Indication: Pleural effusion
  6. TRASTUZUMAB [Suspect]
     Active Substance: TRASTUZUMAB
     Indication: HER2 positive breast cancer
     Dosage: UNK
     Dates: start: 20200116
  7. TRASTUZUMAB [Suspect]
     Active Substance: TRASTUZUMAB
     Indication: Metastases to lung
  8. TRASTUZUMAB [Suspect]
     Active Substance: TRASTUZUMAB
     Indication: Metastases to bone
  9. TRASTUZUMAB [Suspect]
     Active Substance: TRASTUZUMAB
     Indication: Metastases to central nervous system
  10. TRASTUZUMAB [Suspect]
     Active Substance: TRASTUZUMAB
     Indication: Pleural effusion
  11. BEVACIZUMAB [Suspect]
     Active Substance: BEVACIZUMAB
     Dosage: 300 MG
  12. CISPLATIN [Suspect]
     Active Substance: CISPLATIN
     Dosage: 30 MG
  13. ENDOSTATIN [Suspect]
     Active Substance: ENDOSTATIN
     Indication: HER2 positive breast cancer
     Dosage: 90 MG
     Dates: start: 20191120
  14. ENDOSTATIN [Suspect]
     Active Substance: ENDOSTATIN
     Indication: Metastases to lung
  15. PYROTINIB [Suspect]
     Active Substance: PYROTINIB
     Indication: HER2 positive breast cancer
     Dosage: 320 MG
     Route: 048
     Dates: start: 20200116
  16. PYROTINIB [Suspect]
     Active Substance: PYROTINIB
     Indication: Metastases to lung
     Dosage: 400 MG
     Route: 048
     Dates: start: 20200327
  17. PYROTINIB [Suspect]
     Active Substance: PYROTINIB
     Indication: Metastases to bone
  18. PYROTINIB [Suspect]
     Active Substance: PYROTINIB
     Indication: Metastases to central nervous system
  19. PYROTINIB [Suspect]
     Active Substance: PYROTINIB
     Indication: Pleural effusion
  20. DOCETAXEL [Suspect]
     Active Substance: DOCETAXEL
     Indication: Metastases to lung
     Dosage: 60 MG
     Dates: start: 20191120
  21. DOCETAXEL [Suspect]
     Active Substance: DOCETAXEL
     Indication: HER2 positive breast cancer
  22. ZOLEDRONIC ACID [Concomitant]
     Active Substance: ZOLEDRONIC ACID
     Dosage: BONE MODIFIED PROTECTION

REACTIONS (17)
  - Leukopenia [Recovering/Resolving]
  - Myelosuppression [Recovering/Resolving]
  - Neutropenia [Recovering/Resolving]
  - Thirst [Unknown]
  - Abdominal discomfort [Unknown]
  - Gastrooesophageal reflux disease [Recovering/Resolving]
  - Asthenia [Recovering/Resolving]
  - Chest discomfort [Unknown]
  - Dyspnoea [Unknown]
  - Decreased appetite [Recovering/Resolving]
  - Back pain [Unknown]
  - Burning sensation [Recovering/Resolving]
  - Diarrhoea [Recovering/Resolving]
  - Dizziness [Recovering/Resolving]
  - Nausea [Recovering/Resolving]
  - Dyspepsia [Recovering/Resolving]
  - Paronychia [Recovering/Resolving]

NARRATIVE: CASE EVENT DATE: 20200701
